FAERS Safety Report 25285730 (Version 1)
Quarter: 2025Q2

REPORT INFORMATION
  Report Type: Report from Study
  Country: CA (occurrence: CA)
  Receive Date: 20250509
  Receipt Date: 20250509
  Transmission Date: 20250717
  Serious: Yes (Other)
  Sender: AMGEN
  Company Number: CA-BEH-2025203674

PATIENT
  Sex: Female
  Weight: 54.43 kg

DRUGS (16)
  1. AVACOPAN [Suspect]
     Active Substance: AVACOPAN
     Indication: Off label use
     Dosage: 3 DF, BID
     Route: 048
     Dates: start: 202408
  2. GENTAMICIN [Concomitant]
     Active Substance: GENTAMICIN
  3. PREDNISONE [Concomitant]
     Active Substance: PREDNISONE
  4. Ciprolax [Concomitant]
  5. MOCLOBEMIDE [Concomitant]
     Active Substance: MOCLOBEMIDE
  6. VENTOLIN [Concomitant]
     Active Substance: ALBUTEROL SULFATE
  7. RUPATADINE FUMARATE [Concomitant]
     Active Substance: RUPATADINE FUMARATE
  8. PERCOCET [Concomitant]
     Active Substance: ACETAMINOPHEN\OXYCODONE HYDROCHLORIDE
  9. NAPROXEN [Concomitant]
     Active Substance: NAPROXEN
  10. CLINDAMYCIN [Concomitant]
     Active Substance: CLINDAMYCIN
  11. NICORETTE [Concomitant]
     Active Substance: NICOTINE
  12. CUVITRU [Concomitant]
     Active Substance: HUMAN IMMUNOGLOBULIN G
  13. RITUXAN [Concomitant]
     Active Substance: RITUXIMAB
  14. GLYCOPYRROLATE\INDACATEROL\MOMETASONE FUROATE [Concomitant]
     Active Substance: GLYCOPYRROLATE\INDACATEROL\MOMETASONE FUROATE
  15. FOSFOMYCIN [Concomitant]
     Active Substance: FOSFOMYCIN
  16. ETHINYL ESTRADIOL\LEVONORGESTREL [Concomitant]
     Active Substance: ETHINYL ESTRADIOL\LEVONORGESTREL

REACTIONS (4)
  - Infection [Not Recovered/Not Resolved]
  - Pneumonia [Not Recovered/Not Resolved]
  - White blood cell count increased [Not Recovered/Not Resolved]
  - Off label use [Unknown]
